FAERS Safety Report 9914299 (Version 1)
Quarter: 2014Q1

REPORT INFORMATION
  Report Type: Spontaneous
  Country: US (occurrence: None)
  Receive Date: 20140219
  Receipt Date: 20140219
  Transmission Date: 20141002
  Serious: Yes (Other)
  Sender: FDA-Public Use
  Company Number: None

PATIENT
  Sex: Female

DRUGS (1)
  1. DOXYCYCLINE 100 MG [Suspect]
     Dosage: 1 PILL, TWICE DAILY, TAKEN BY MOUTH
     Route: 048

REACTIONS (7)
  - Asthenia [None]
  - Decreased appetite [None]
  - Dyspepsia [None]
  - Disorientation [None]
  - Depression [None]
  - Crying [None]
  - Oral mucosal blistering [None]
